FAERS Safety Report 9470046 (Version 1)
Quarter: 2013Q3

REPORT INFORMATION
  Report Type: Spontaneous
  Country: US (occurrence: None)
  Receive Date: 20130822
  Receipt Date: 20130822
  Transmission Date: 20140515
  Serious: No
  Sender: FDA-Public Use
  Company Number: None

PATIENT
  Age: 56 Year
  Sex: Female

DRUGS (1)
  1. METHYLCOBALAMINE/FOLINIC ACID/ HYDROXOCALBALAMINE/P5P [Suspect]
     Indication: GENE MUTATION
     Dosage: IJECT 0.3  ONCE DAILY  INTO THE MUSCLE
     Route: 030
     Dates: start: 20130818

REACTIONS (5)
  - Diarrhoea [None]
  - Headache [None]
  - Product contamination microbial [None]
  - Poor quality drug administered [None]
  - Escherichia infection [None]
